FAERS Safety Report 16248988 (Version 1)
Quarter: 2019Q2

REPORT INFORMATION
  Report Type: Spontaneous
  Country: FR (occurrence: FR)
  Receive Date: 20190429
  Receipt Date: 20190429
  Transmission Date: 20190711
  Serious: Yes (Other)
  Sender: FDA-Public Use
  Company Number: FR-ACCORD-124547

PATIENT
  Age: 84 Year
  Sex: Female

DRUGS (8)
  1. LASILIX [Suspect]
     Active Substance: FUROSEMIDE
     Indication: HYPERTENSION
     Dosage: UNSPECIFIED
     Route: 048
     Dates: start: 201805
  2. CORGARD [Suspect]
     Active Substance: NADOLOL
     Indication: HYPERTENSION
     Dosage: UNSPECIFIED
     Route: 048
     Dates: start: 201805
  3. ELIQUIS [Suspect]
     Active Substance: APIXABAN
     Indication: HYPERTENSION
     Dosage: UNSPECIFIED
     Route: 048
     Dates: start: 201805
  4. BACTRIM [Suspect]
     Active Substance: SULFAMETHOXAZOLE\TRIMETHOPRIM
     Indication: PROPHYLAXIS
     Dosage: UNSPECIFIED
     Route: 048
     Dates: start: 201803, end: 20190207
  5. ZELITREX [Suspect]
     Active Substance: VALACYCLOVIR HYDROCHLORIDE
     Indication: PROPHYLAXIS
     Dosage: UNSPECIFIED
     Route: 048
     Dates: start: 201803, end: 20190207
  6. ALLOPURINOL. [Suspect]
     Active Substance: ALLOPURINOL
     Indication: PROPHYLAXIS
     Dosage: UNSPECIFIED
     Route: 048
     Dates: start: 201803
  7. MABTHERA [Suspect]
     Active Substance: RITUXIMAB
     Indication: WALDENSTROM^S MACROGLOBULINAEMIA
     Dosage: 5 COURSES IN TOTAL
     Route: 042
     Dates: start: 20180305, end: 20180820
  8. CHLORAMBUCIL [Suspect]
     Active Substance: CHLORAMBUCIL
     Indication: WALDENSTROM^S MACROGLOBULINAEMIA
     Dosage: 5 COURSES IN TOTAL
     Route: 048
     Dates: start: 20180305, end: 20180820

REACTIONS (1)
  - Neutropenia [Not Recovered/Not Resolved]

NARRATIVE: CASE EVENT DATE: 20190205
